FAERS Safety Report 18106029 (Version 2)
Quarter: 2020Q3

REPORT INFORMATION
  Report Type: Spontaneous
  Country: US (occurrence: US)
  Receive Date: 20200803
  Receipt Date: 20200820
  Transmission Date: 20201103
  Serious: Yes (Other)
  Sender: FDA-Public Use
  Company Number: NVSC2020US211738

PATIENT
  Age: 9 Year
  Sex: Female

DRUGS (1)
  1. MEKINIST [Suspect]
     Active Substance: TRAMETINIB DIMETHYL SULFOXIDE
     Indication: NEOPLASM
     Dosage: 1.5 MG, QD
     Route: 048
     Dates: start: 20200606

REACTIONS (5)
  - Diarrhoea [Unknown]
  - Underdose [Unknown]
  - Acne [Unknown]
  - Rash [Unknown]
  - Haematochezia [Unknown]

NARRATIVE: CASE EVENT DATE: 20200606
